FAERS Safety Report 7231948-0 (Version None)
Quarter: 2011Q1

REPORT INFORMATION
  Report Type: 
  Country: None (occurrence: None)
  Receive Date: 20110118
  Receipt Date: 20110111
  Transmission Date: 20110831
  Serious: Yes (Other)
  Sender: FDA-Public Use
  Company Number: FR-PFIZER INC-2011006742

PATIENT
  Age: 44 Year
  Sex: Male

DRUGS (2)
  1. VENTOLIN [Concomitant]
  2. EFFEXOR [Suspect]

REACTIONS (2)
  - BRONCHOSPASM [None]
  - ASTHMA [None]
